FAERS Safety Report 9867324 (Version 1)
Quarter: 2014Q1

REPORT INFORMATION
  Report Type: Report from Study
  Country: CA (occurrence: CA)
  Receive Date: 20140204
  Receipt Date: 20140204
  Transmission Date: 20141002
  Serious: Yes (Other)
  Sender: FDA-Public Use
  Company Number: CA-JNJFOC-20140118028

PATIENT
  Age: 74 Year
  Sex: Female
  Weight: 65 kg

DRUGS (9)
  1. REMICADE [Suspect]
     Indication: RHEUMATOID ARTHRITIS
     Route: 042
     Dates: start: 2003
  2. HYDROCHLOORTHIAZIDE [Concomitant]
     Route: 065
  3. METHOTREXATE [Concomitant]
     Route: 065
  4. LEVOTHYROXINE [Concomitant]
     Route: 065
  5. FOLIC ACID [Concomitant]
     Route: 065
  6. ZOCOR [Concomitant]
     Route: 065
  7. ALTACE [Concomitant]
     Route: 065
  8. OXAZEPAM [Concomitant]
     Route: 065
  9. ASA [Concomitant]
     Route: 065

REACTIONS (2)
  - Loss of consciousness [Recovered/Resolved]
  - Contusion [Recovered/Resolved]
